FAERS Safety Report 9467077 (Version 1)
Quarter: 2013Q3

REPORT INFORMATION
  Report Type: Spontaneous
  Country: US (occurrence: US)
  Receive Date: 20130820
  Receipt Date: 20130820
  Transmission Date: 20140515
  Serious: No
  Sender: FDA-Public Use
  Company Number: US-PFIZER INC-2013236824

PATIENT
  Age: 46 Year
  Sex: 0

DRUGS (8)
  1. ZOLOFT [Suspect]
     Dosage: UNK
  2. TRAMADOL HCL [Suspect]
     Dosage: UNK
  3. CALCIUM CARBONATE [Suspect]
     Dosage: UNK
  4. QUINAPRIL HCL [Suspect]
     Dosage: UNK
  5. IMITREX [Suspect]
     Dosage: UNK
  6. FLEXERIL [Suspect]
     Dosage: UNK
  7. PRAVACHOL [Suspect]
     Dosage: UNK
  8. PEPCID [Suspect]
     Dosage: UNK

REACTIONS (1)
  - Drug hypersensitivity [Unknown]
